FAERS Safety Report 22629222 (Version 2)
Quarter: 2023Q2

REPORT INFORMATION
  Report Type: Report from Study
  Country: US (occurrence: US)
  Receive Date: 20230622
  Receipt Date: 20230627
  Transmission Date: 20230721
  Serious: Yes (Other)
  Sender: FDA-Public Use
  Company Number: US-GILEAD-2023-0633668

PATIENT
  Age: 52 Year
  Sex: Male
  Weight: 113 kg

DRUGS (1)
  1. SACITUZUMAB GOVITECAN-HZIY [Suspect]
     Active Substance: SACITUZUMAB GOVITECAN-HZIY
     Indication: Glioblastoma
     Dosage: UNK
     Route: 042
     Dates: start: 20230612, end: 20230619

REACTIONS (2)
  - White blood cell disorder [Unknown]
  - Neutropenia [Not Recovered/Not Resolved]

NARRATIVE: CASE EVENT DATE: 20230619
